FAERS Safety Report 18636898 (Version 1)
Quarter: 2020Q4

REPORT INFORMATION
  Report Type: Other
  Country: LU (occurrence: LU)
  Receive Date: 20201218
  Receipt Date: 20201218
  Transmission Date: 20210114
  Serious: Yes (Other)
  Sender: FDA-Public Use
  Company Number: LU-HQ SPECIALTY-LU-2020INT000154

PATIENT
  Age: 38 Year
  Sex: Male

DRUGS (21)
  1. PARACETAMOL B BRAUN [Concomitant]
     Active Substance: ACETAMINOPHEN
     Indication: PRODUCT USED FOR UNKNOWN INDICATION
     Dosage: (1 GM,6 HR)
     Route: 042
     Dates: start: 20201019
  2. ACTRAPID [Concomitant]
     Active Substance: INSULIN HUMAN
     Indication: PRODUCT USED FOR UNKNOWN INDICATION
     Dosage: (1.5 IU,1 HR)
     Route: 058
  3. CLEXANE [Concomitant]
     Active Substance: ENOXAPARIN SODIUM
     Indication: THROMBOSIS PROPHYLAXIS
     Dosage: (40 MG,12 HR)
     Route: 058
     Dates: start: 20201019, end: 20201022
  4. LASIX [Suspect]
     Active Substance: FUROSEMIDE
     Indication: PRODUCT USED FOR UNKNOWN INDICATION
     Dosage: (20 MG,12 HR)
     Route: 042
     Dates: start: 20201023, end: 20201108
  5. MOVICOL [Suspect]
     Active Substance: POLYETHYLENE GLYCOL 3350\POTASSIUM CHLORIDE\SODIUM BICARBONATE\SODIUM CHLORIDE
     Indication: PRODUCT USED FOR UNKNOWN INDICATION
     Dosage: (1 DOSAGE FORM,12 HR)
     Route: 048
     Dates: start: 20201026, end: 20201109
  6. LEVOPHED [Suspect]
     Active Substance: NOREPINEPHRINE BITARTRATE
     Indication: CHEMOTHERAPY CYTOKINE PROPHYLAXIS
     Dosage: (0.12 UG/KG,1 MIN)
     Route: 042
     Dates: start: 20201019, end: 20201106
  7. FORTECORTIN                        /00016001/ [Concomitant]
     Active Substance: DEXAMETHASONE
     Indication: PRODUCT USED FOR UNKNOWN INDICATION
     Dosage: (8 MG,1 D)
     Route: 042
     Dates: start: 20201022, end: 20201104
  8. CLEXANE [Concomitant]
     Active Substance: ENOXAPARIN SODIUM
     Dosage: (40 MG,1 D)
     Route: 058
     Dates: start: 20201022
  9. CAYSTON INHALATION [Concomitant]
     Active Substance: AZTREONAM LYSINE
     Indication: PRODUCT USED FOR UNKNOWN INDICATION
     Dosage: (75 MG, 8 HR)
     Route: 055
  10. LYSOMUCIL [Suspect]
     Active Substance: ACETYLCYSTEINE
     Indication: PRODUCT USED FOR UNKNOWN INDICATION
     Dosage: (300 MG,6 HR)
     Route: 042
     Dates: start: 20201031, end: 20201109
  11. VANCOMYCINE                        /00314401/ [Suspect]
     Active Substance: VANCOMYCIN
     Indication: PRODUCT USED FOR UNKNOWN INDICATION
     Dosage: (2 GM,1 D)
     Route: 042
     Dates: start: 20201019, end: 20201111
  12. MIDAZOLAM B. BRAUN [Suspect]
     Active Substance: MIDAZOLAM HYDROCHLORIDE
     Indication: SEDATIVE THERAPY
     Dosage: (2 MG,1 HR)
     Route: 042
     Dates: start: 20201027, end: 20201106
  13. DUOVENT [Concomitant]
     Active Substance: FENOTEROL HYDROBROMIDE
     Indication: PRODUCT USED FOR UNKNOWN INDICATION
     Dosage: (1 DOSAGE FORM, 6 HR)
     Route: 055
     Dates: start: 20201019
  14. CIPROFLOXACINE KABI [Suspect]
     Active Substance: CIPROFLOXACIN
     Indication: PRODUCT USED FOR UNKNOWN INDICATION
     Dosage: (400 MG,12 HR)
     Route: 042
     Dates: start: 20201019, end: 20201111
  15. DEXMEDETOMIDINE HYDROCHLORIDE. [Suspect]
     Active Substance: DEXMEDETOMIDINE HYDROCHLORIDE
     Indication: SEDATIVE THERAPY
     Dosage: (0.8 UG/KG,1 D)
     Route: 042
     Dates: start: 20201020, end: 20201106
  16. COLISTINEB [Suspect]
     Active Substance: COLISTIMETHATE SODIUM
     Indication: PRODUCT USED FOR UNKNOWN INDICATION
     Dosage: (2 MILLION INTERNATIONAL UNIT,12 HR)
     Route: 055
     Dates: start: 20201104
  17. MEROPENEM KABI [Suspect]
     Active Substance: MEROPENEM
     Indication: PRODUCT USED FOR UNKNOWN INDICATION
     Dosage: (2 GM,8 HR)
     Route: 042
     Dates: start: 20201022, end: 20201111
  18. OBRACIN [Suspect]
     Active Substance: TOBRAMYCIN
     Indication: RESPIRATORY TRACT INFECTION
     Dosage: (385 MG)
     Route: 042
     Dates: start: 20201030, end: 20201111
  19. ZITHROMAX [Concomitant]
     Active Substance: AZITHROMYCIN DIHYDRATE
     Indication: PRODUCT USED FOR UNKNOWN INDICATION
     Dosage: 250 MG ON MONDAYS, WEDNESDAYS AND FRIDAYS (750 MG,1 WK)
     Route: 048
  20. CREON [Concomitant]
     Active Substance: PANCRELIPASE AMYLASE\PANCRELIPASE LIPASE\PANCRELIPASE PROTEASE
     Indication: PANCREATIC FAILURE
     Dosage: 1 OR 2 CAPSULES 3 TIMES PER DAY (1 D)
     Route: 048
  21. NEXIAM                             /01479302/ [Concomitant]
     Active Substance: ESOMEPRAZOLE MAGNESIUM
     Indication: PRODUCT USED FOR UNKNOWN INDICATION
     Dosage: LONG TERM TREATMENT, ONGOING (40 MG,1 D)
     Route: 042

REACTIONS (2)
  - Generalised tonic-clonic seizure [Recovered/Resolved]
  - Myoclonus [Not Recovered/Not Resolved]

NARRATIVE: CASE EVENT DATE: 20201107
